FAERS Safety Report 4334521-7 (Version None)
Quarter: 2004Q2

REPORT INFORMATION
  Report Type: 
  Country: None (occurrence: None)
  Receive Date: 20040407
  Receipt Date: 20040325
  Transmission Date: 20050107
  Serious: Yes (Other)
  Sender: FDA-Public Use
  Company Number: AT-GLAXOSMITHKLINE-B0327995A

PATIENT
  Age: 15 Year
  Sex: Female

DRUGS (2)
  1. DARAPRIM [Suspect]
     Indication: TOXOPLASMOSIS
  2. LIDAPRIM [Concomitant]
     Indication: TOXOPLASMOSIS

REACTIONS (1)
  - PAPILLOEDEMA [None]
